FAERS Safety Report 12510338 (Version 1)
Quarter: 2016Q2

REPORT INFORMATION
  Report Type: Spontaneous
  Country: US (occurrence: US)
  Receive Date: 20160629
  Receipt Date: 20160629
  Transmission Date: 20160815
  Serious: No
  Sender: FDA-Public Use
  Company Number: US-RB-079583-15

PATIENT
  Sex: Female

DRUGS (3)
  1. MUCINEX [Suspect]
     Active Substance: GUAIFENESIN
     Indication: PRODUCTIVE COUGH
  2. MUCINEX [Suspect]
     Active Substance: GUAIFENESIN
     Indication: HEADACHE
     Dosage: . ,QD
     Route: 065
     Dates: start: 20150803
  3. MUCINEX [Suspect]
     Active Substance: GUAIFENESIN
     Indication: NASAL CONGESTION

REACTIONS (1)
  - Drug ineffective [Not Recovered/Not Resolved]
